FAERS Safety Report 5836701-8 (Version None)
Quarter: 2008Q3

REPORT INFORMATION
  Report Type: 
  Country: None (occurrence: None)
  Receive Date: 20080805
  Receipt Date: 20080722
  Transmission Date: 20090109
  Serious: Yes (Death, Hospitalization)
  Sender: FDA-Public Use
  Company Number: 2008AL005473

PATIENT
  Age: 81 Year
  Sex: Female
  Weight: 79.3795 kg

DRUGS (1)
  1. DIGOXIN [Suspect]
     Dosage: DAILY PO
     Route: 048
     Dates: start: 20060101, end: 20070209

REACTIONS (5)
  - BACK INJURY [None]
  - DIARRHOEA [None]
  - FALL [None]
  - NAUSEA [None]
  - VOMITING [None]
